FAERS Safety Report 8451085-7 (Version None)
Quarter: 2012Q2

REPORT INFORMATION
  Report Type: 
  Country: None (occurrence: None)
  Receive Date: 20120620
  Receipt Date: 20120606
  Transmission Date: 20120825
  Serious: Yes (Other)
  Sender: FDA-Public Use
  Company Number: JP-ROCHE-1077810

PATIENT
  Age: 17 Year
  Sex: Female

DRUGS (4)
  1. GANCICLOVIR [Concomitant]
     Route: 041
     Dates: start: 20100101
  2. TACROLIMUS [Suspect]
     Indication: PRODUCT USED FOR UNKNOWN INDICATION
     Dates: start: 20090101
  3. MYCOPHENOLATE MOFETIL [Suspect]
     Indication: GRAFT VERSUS HOST DISEASE
  4. VALGANCICLOVIR [Suspect]
     Indication: CYTOMEGALOVIRUS CHORIORETINITIS
     Route: 048
     Dates: start: 20101101

REACTIONS (4)
  - CYTOMEGALOVIRUS CHORIORETINITIS [None]
  - GRANULOCYTOPENIA [None]
  - RETINAL HAEMORRHAGE [None]
  - VITREOUS OPACITIES [None]
